FAERS Safety Report 22185788 (Version 1)
Quarter: 2023Q2

REPORT INFORMATION
  Report Type: Spontaneous
  Country: JP (occurrence: JP)
  Receive Date: 20230407
  Receipt Date: 20230407
  Transmission Date: 20230722
  Serious: Yes (Other)
  Sender: FDA-Public Use
  Company Number: JP-GILEAD-2023-0621271

PATIENT
  Age: 93 Year
  Sex: Female

DRUGS (2)
  1. VEKLURY [Suspect]
     Active Substance: REMDESIVIR
     Indication: COVID-19
     Dosage: 200 MG
     Route: 041
     Dates: start: 20230322, end: 20230322
  2. VEKLURY [Suspect]
     Active Substance: REMDESIVIR
     Dosage: 50 MG
     Route: 041
     Dates: start: 20230323, end: 20230324

REACTIONS (3)
  - Pneumonia [Unknown]
  - Pneumonia aspiration [Unknown]
  - Off label use [Recovered/Resolved]

NARRATIVE: CASE EVENT DATE: 20230323
